FAERS Safety Report 6606691-9 (Version None)
Quarter: 2010Q1

REPORT INFORMATION
  Report Type: 
  Country: None (occurrence: None)
  Receive Date: 20100226
  Receipt Date: 20090211
  Transmission Date: 20100710
  Serious: No
  Sender: FDA-Public Use
  Company Number: US-ALLERGAN-0809869US

PATIENT
  Age: 47 Year
  Sex: Female

DRUGS (12)
  1. BOTOX COSMETIC [Suspect]
     Indication: SKIN WRINKLING
     Dosage: 20 UNITS, SINGLE
     Route: 030
     Dates: start: 20080725, end: 20080725
  2. BOTOX COSMETIC [Suspect]
     Dosage: UNK, SINGLE
     Route: 030
     Dates: start: 20070322, end: 20070322
  3. BOTOX COSMETIC [Suspect]
     Dosage: UNK, SINGLE
     Route: 030
     Dates: start: 20070823, end: 20070823
  4. BOTOX COSMETIC [Suspect]
     Dosage: UNK, SINGLE
     Route: 030
     Dates: start: 20070904, end: 20070904
  5. BOTOX COSMETIC [Suspect]
     Dosage: UNK, SINGLE
     Route: 030
     Dates: start: 20071022, end: 20071022
  6. BOTOX COSMETIC [Suspect]
     Dosage: UNK, SINGLE
     Route: 030
     Dates: start: 20071217, end: 20071217
  7. BOTOX COSMETIC [Suspect]
     Dosage: UNK, SINGLE
     Route: 030
     Dates: start: 20080128, end: 20080128
  8. BOTOX COSMETIC [Suspect]
     Dosage: UNK, SINGLE
     Route: 030
     Dates: start: 20080517, end: 20080517
  9. BOTOX COSMETIC [Suspect]
     Dosage: 5 UNITS, SINGLE
     Route: 030
     Dates: start: 20080814, end: 20080814
  10. BOTOX COSMETIC [Suspect]
     Dosage: 6 UNITS, SINGLE
     Route: 030
     Dates: start: 20080827, end: 20080827
  11. JUVEDERM PLUS [Suspect]
     Indication: SKIN WRINKLING
     Dosage: UNK, SINGLE
     Route: 023
     Dates: start: 20080725, end: 20080725
  12. JUVEDERM PLUS [Suspect]

REACTIONS (1)
  - FACIAL PALSY [None]
